FAERS Safety Report 14881864 (Version 3)
Quarter: 2018Q2

REPORT INFORMATION
  Report Type: Spontaneous
  Country: ME (occurrence: ME)
  Receive Date: 20180511
  Receipt Date: 20180607
  Transmission Date: 20180711
  Serious: Yes (Other)
  Sender: FDA-Public Use
  Company Number: ME-PFIZER INC-2018189921

PATIENT
  Age: 49 Year
  Sex: Male

DRUGS (2)
  1. SUTENT [Suspect]
     Active Substance: SUNITINIB MALATE
     Indication: METASTATIC RENAL CELL CARCINOMA
     Dosage: 50 MG, CYCLIC(1X50 MG, 28+14)
     Route: 048
     Dates: start: 201501, end: 20160226
  2. SUTENT [Suspect]
     Active Substance: SUNITINIB MALATE
     Dosage: 37.5 MG, CYCLIC (28+14)
     Route: 048
     Dates: start: 20160227, end: 20161028

REACTIONS (8)
  - Pleural effusion [Unknown]
  - Mucosal inflammation [Unknown]
  - Asthenia [Unknown]
  - Decreased appetite [Unknown]
  - Yellow skin [Unknown]
  - Neoplasm progression [Unknown]
  - Hypothyroidism [Unknown]
  - Aphthous ulcer [Unknown]

NARRATIVE: CASE EVENT DATE: 201503
